FAERS Safety Report 10545476 (Version 4)
Quarter: 2015Q1

REPORT INFORMATION
  Report Type: Spontaneous
  Country: US (occurrence: US)
  Receive Date: 20141027
  Receipt Date: 20150204
  Transmission Date: 20150720
  Serious: Yes (Life-Threatening, Hospitalization)
  Sender: FDA-Public Use
  Company Number: US-ACTELION-A-NJ2014-106360

PATIENT
  Age: 90 Year
  Sex: Male

DRUGS (12)
  1. OPSUMIT [Suspect]
     Active Substance: MACITENTAN
     Dosage: 10 MG, QD
     Route: 048
     Dates: start: 20141015
  2. VENTOLIN [Concomitant]
     Active Substance: ALBUTEROL SULFATE
  3. FUROSEMIDE. [Concomitant]
     Active Substance: FUROSEMIDE
  4. FINASTERIDE. [Concomitant]
     Active Substance: FINASTERIDE
  5. LORAZEPAM. [Concomitant]
     Active Substance: LORAZEPAM
  6. LEVOTHYROXINE [Concomitant]
     Active Substance: LEVOTHYROXINE
  7. OPSUMIT [Suspect]
     Active Substance: MACITENTAN
     Indication: PULMONARY ARTERIAL HYPERTENSION
     Dosage: 10 MG, OD
     Route: 048
     Dates: start: 20140725
  8. AFRIN [Concomitant]
     Active Substance: OXYMETAZOLINE
  9. TAMSULOSIN [Concomitant]
     Active Substance: TAMSULOSIN
  10. COLACE [Concomitant]
     Active Substance: DOCUSATE SODIUM
  11. CEPHALEXIN. [Concomitant]
     Active Substance: CEPHALEXIN
  12. FERROUS GLUCONATE [Concomitant]
     Active Substance: FERROUS GLUCONATE

REACTIONS (3)
  - Concomitant disease aggravated [Unknown]
  - Epistaxis [Unknown]
  - Peripheral swelling [Recovering/Resolving]

NARRATIVE: CASE EVENT DATE: 20140902
